FAERS Safety Report 4635123-5 (Version None)
Quarter: 2005Q2

REPORT INFORMATION
  Report Type: 
  Country: None (occurrence: None)
  Receive Date: 20050414
  Receipt Date: 20050401
  Transmission Date: 20051028
  Serious: Yes (Other)
  Sender: FDA-Public Use
  Company Number: US-GLAXOSMITHKLINE-A0552236A

PATIENT
  Age: 27 Year
  Sex: Male
  Weight: 86.4 kg

DRUGS (1)
  1. NICODERM CQ [Suspect]
     Dosage: 21MG PER DAY
     Route: 062
     Dates: start: 20050301, end: 20050401

REACTIONS (3)
  - HAEMATOCHEZIA [None]
  - INTENTIONAL MISUSE [None]
  - RECTAL HAEMORRHAGE [None]
